FAERS Safety Report 23725620 (Version 6)
Quarter: 2025Q2

REPORT INFORMATION
  Report Type: Spontaneous
  Country: US (occurrence: US)
  Receive Date: 20240410
  Receipt Date: 20250623
  Transmission Date: 20250717
  Serious: Yes (Other)
  Sender: BRISTOL-MYERS SQUIBB COMPANY
  Company Number: US-BRISTOL-MYERS SQUIBB COMPANY-2024-042849

PATIENT
  Age: 81 Year
  Sex: Female

DRUGS (4)
  1. LENALIDOMIDE [Suspect]
     Active Substance: LENALIDOMIDE
     Indication: Plasma cell myeloma
     Dosage: TAKE 1 CAPSULE BY MOUTH EVERY DAY FOR 14 DAYS, THEN 7 DAYS OFF
     Route: 048
  2. LENALIDOMIDE [Suspect]
     Active Substance: LENALIDOMIDE
     Dosage: TAKE 1 CAPSULE BY MOUTH EVERY DAY FOR 14 DAYS, THEN 7 DAYS OFF
     Route: 048
  3. LENALIDOMIDE [Suspect]
     Active Substance: LENALIDOMIDE
     Dosage: FREQUENCY: TAKE 1 CAPSULE BY MOUTH DAILY FOR 14 DAYS, THEN 7 DAYS OFF.
     Route: 048
  4. LENALIDOMIDE [Suspect]
     Active Substance: LENALIDOMIDE
     Dosage: TAKE 1 CAPSULE BY MOUTH DAILY FOR 14 DAYS, THEN 7 DAYS OFF.
     Route: 048

REACTIONS (7)
  - Peripheral swelling [Not Recovered/Not Resolved]
  - Off label use [Unknown]
  - Product dose omission issue [Not Recovered/Not Resolved]
  - Product dose omission in error [Recovered/Resolved]
  - Swelling [Unknown]
  - Nasopharyngitis [Not Recovered/Not Resolved]
  - Swelling face [Not Recovered/Not Resolved]
